FAERS Safety Report 4447894-1 (Version None)
Quarter: 2004Q3

REPORT INFORMATION
  Report Type: 
  Country: None (occurrence: None)
  Receive Date: 20040729
  Receipt Date: 20040512
  Transmission Date: 20050211
  Serious: Yes (Hospitalization)
  Sender: FDA-Public Use
  Company Number: SAGL-ZLB/04/12/FRA

PATIENT
  Age: 47 Year
  Sex: Female
  Weight: 80 kg

DRUGS (5)
  1. SANDOGLOBULIN [Suspect]
     Indication: GLOMERULONEPHRITIS ACUTE
     Dosage: 80 G, O.A.D., I.V.
     Route: 042
     Dates: start: 20040313, end: 20040314
  2. COZAAR [Concomitant]
  3. ZYLORIC (ALLOPURINOL) [Concomitant]
  4. PRAVASTATIN [Concomitant]
  5. BUMETANIDE [Concomitant]

REACTIONS (5)
  - ABDOMINAL PAIN UPPER [None]
  - ANXIETY [None]
  - RENAL FAILURE [None]
  - RENAL FAILURE ACUTE [None]
  - VOMITING [None]
